FAERS Safety Report 19805780 (Version 1)
Quarter: 2021Q3

REPORT INFORMATION
  Report Type: Spontaneous
  Country: US (occurrence: US)
  Receive Date: 20210908
  Receipt Date: 20210908
  Transmission Date: 20211014
  Serious: No
  Sender: FDA-Public Use
  Company Number: US-ASTELLAS-2020US045140

PATIENT
  Sex: Male

DRUGS (1)
  1. XTANDI [Suspect]
     Active Substance: ENZALUTAMIDE
     Indication: HORMONE-DEPENDENT PROSTATE CANCER
     Dosage: UNK UNK, UNKNOWN FREQ.
     Route: 065
     Dates: start: 20170125

REACTIONS (3)
  - COVID-19 [Unknown]
  - Tremor [Unknown]
  - Fatigue [Not Recovered/Not Resolved]

NARRATIVE: CASE EVENT DATE: 2020
